FAERS Safety Report 18464622 (Version 2)
Quarter: 2020Q4

REPORT INFORMATION
  Report Type: Spontaneous
  Country: SE (occurrence: SE)
  Receive Date: 20201104
  Receipt Date: 20201106
  Transmission Date: 20210114
  Serious: Yes (Other)
  Sender: FDA-Public Use
  Company Number: SE-JNJFOC-20201051029

PATIENT
  Age: 53 Year
  Sex: Female

DRUGS (4)
  1. IMUREL                             /00001501/ [Concomitant]
     Active Substance: AZATHIOPRINE SODIUM
     Route: 065
  2. PAPAVERIN RECIP [Concomitant]
     Active Substance: PAPAVERINE
     Route: 065
  3. REMICADE [Suspect]
     Active Substance: INFLIXIMAB
     Indication: CROHN^S DISEASE
     Dosage: 450MGN
     Route: 042
     Dates: start: 200803, end: 20100923
  4. DIKLOFENAK SANDOZ [Concomitant]
     Route: 065

REACTIONS (1)
  - Systemic lupus erythematosus [Not Recovered/Not Resolved]

NARRATIVE: CASE EVENT DATE: 201011
